FAERS Safety Report 9616890 (Version 6)
Quarter: 2014Q1

REPORT INFORMATION
  Report Type: Report from Study
  Country: EG (occurrence: EG)
  Receive Date: 20131011
  Receipt Date: 20140217
  Transmission Date: 20141002
  Serious: Yes (Other)
  Sender: FDA-Public Use
  Company Number: PHHO2013EG013203

PATIENT
  Age: 56 Year
  Sex: Female
  Weight: 65 kg

DRUGS (4)
  1. AMN107 [Suspect]
     Indication: CHRONIC MYELOID LEUKAEMIA
     Dosage: 300 MG, BID
     Route: 048
     Dates: start: 20120212, end: 20130605
  2. AMN107 [Suspect]
     Dosage: 400 MG, BID
     Route: 048
     Dates: start: 20120606
  3. ATOR [Suspect]
     Indication: HYPERLIPIDAEMIA
     Dosage: 10 MG, QD
     Route: 048
     Dates: start: 20130822
  4. ELTROXIN [Concomitant]
     Indication: HYPOTHYROIDISM
     Dosage: 125 UG, QD
     Route: 048

REACTIONS (1)
  - Cataract [Recovered/Resolved]
